FAERS Safety Report 19672359 (Version 1)
Quarter: 2021Q3

REPORT INFORMATION
  Report Type: Spontaneous
  Country: ID (occurrence: ID)
  Receive Date: 20210808
  Receipt Date: 20210808
  Transmission Date: 20211014
  Serious: Yes (Death)
  Sender: FDA-Public Use
  Company Number: ID-ROCHE-2885969

PATIENT

DRUGS (2)
  1. ACTILYSE [Suspect]
     Active Substance: ALTEPLASE
     Indication: PULMONARY EMBOLISM
     Route: 065
  2. ACTILYSE [Suspect]
     Active Substance: ALTEPLASE
     Indication: HAEMODYNAMIC INSTABILITY

REACTIONS (1)
  - Death [Fatal]
